FAERS Safety Report 5923282-3 (Version None)
Quarter: 2008Q4

REPORT INFORMATION
  Report Type: 
  Country: None (occurrence: None)
  Receive Date: 20081020
  Receipt Date: 20081008
  Transmission Date: 20090506
  Serious: Yes (Other)
  Sender: FDA-Public Use
  Company Number: CA-SOLVAY-00207034508

PATIENT
  Age: 50 Year
  Sex: Male

DRUGS (1)
  1. COVERSYL [Suspect]
     Indication: HYPERTENSION
     Dosage: DAILY DOSE: 8 MILLIGRAM(S)
     Route: 048
     Dates: start: 20070713, end: 20070909

REACTIONS (7)
  - ANXIETY [None]
  - BALANCE DISORDER [None]
  - CEREBRAL CYST [None]
  - CONFUSIONAL STATE [None]
  - EPILEPSY [None]
  - INCOHERENT [None]
  - MEMORY IMPAIRMENT [None]
